FAERS Safety Report 7131355-5 (Version None)
Quarter: 2010Q4

REPORT INFORMATION
  Report Type: 
  Country: None (occurrence: None)
  Receive Date: 20101201
  Receipt Date: 20100609
  Transmission Date: 20110411
  Serious: No
  Sender: FDA-Public Use
  Company Number: US-TYCO HEALTHCARE/MALLINCKRODT-T201000856

PATIENT
  Sex: Female

DRUGS (3)
  1. METHYLIN [Suspect]
     Indication: AUTONOMIC NEUROPATHY
     Dosage: 20 MG, TID
     Route: 048
     Dates: start: 20100310, end: 20100310
  2. METHYLIN [Suspect]
     Dosage: 1/2 TABLET, TID
     Dates: end: 20100606
  3. LORAZEPAM [Concomitant]
     Indication: ANXIETY
     Dosage: 1 MG, TID
     Route: 048

REACTIONS (5)
  - DIZZINESS [None]
  - DYSPNOEA [None]
  - INTENTIONAL DRUG MISUSE [None]
  - SOMNOLENCE [None]
  - STUPOR [None]
